FAERS Safety Report 10583811 (Version 3)
Quarter: 2014Q4

REPORT INFORMATION
  Report Type: Spontaneous
  Country: CH (occurrence: CH)
  Receive Date: 20141114
  Receipt Date: 20141120
  Transmission Date: 20150529
  Serious: Yes (Hospitalization)
  Sender: FDA-Public Use
  Company Number: CH-PFIZER INC-2014308156

PATIENT
  Age: 77 Year
  Sex: Male
  Weight: 78 kg

DRUGS (13)
  1. VALACICLOVIR [Concomitant]
     Active Substance: VALACYCLOVIR HYDROCHLORIDE
     Dosage: 250 MG, 1X/DAY
     Route: 048
  2. CORDARONE [Suspect]
     Active Substance: AMIODARONE HYDROCHLORIDE
     Dosage: 200 MG, DAILY
     Route: 048
     Dates: end: 20140920
  3. BELOC-ZOK COMP [Interacting]
     Active Substance: HYDROCHLOROTHIAZIDE\METOPROLOL SUCCINATE
     Dosage: 100 MG, 2X/DAY
     Dates: start: 20140926, end: 20141010
  4. BELOC-ZOK COMP [Interacting]
     Active Substance: HYDROCHLOROTHIAZIDE\METOPROLOL SUCCINATE
     Dosage: 100 MG, 3X/DAY
     Route: 048
     Dates: start: 201410
  5. DIGOXIN. [Interacting]
     Active Substance: DIGOXIN
     Indication: ATRIAL FIBRILLATION
     Dosage: UNK, ALTERNATE DAY
     Dates: start: 20140919, end: 20140925
  6. DIGOXIN. [Interacting]
     Active Substance: DIGOXIN
     Dosage: UNK
     Dates: start: 20140926, end: 20141009
  7. DIGOXIN. [Interacting]
     Active Substance: DIGOXIN
     Dosage: 0.25 MG, 1X/DAY
     Route: 048
     Dates: start: 201410, end: 20141009
  8. PRIMPERAN [Concomitant]
     Active Substance: METOCLOPRAMIDE HYDROCHLORIDE
     Dosage: 10 MG, 3X/DAY
     Route: 048
     Dates: start: 201410
  9. CORDARONE [Suspect]
     Active Substance: AMIODARONE HYDROCHLORIDE
     Dosage: 200 MG, 2X/DAY
     Route: 048
     Dates: start: 20141001, end: 20141013
  10. CUBICIN [Concomitant]
     Active Substance: DAPTOMYCIN
     Dosage: 500 MG, 1X/DAY
     Route: 040
     Dates: start: 201410, end: 20141015
  11. DILZEM [Interacting]
     Active Substance: DILTIAZEM
     Dosage: 90 MG, 3X/DAY
     Route: 048
     Dates: start: 20140915
  12. PARACETAMOL [Concomitant]
     Active Substance: ACETAMINOPHEN
     Dosage: 1 G, AS NEEDED
  13. VELCADE [Concomitant]
     Active Substance: BORTEZOMIB

REACTIONS (18)
  - Decreased appetite [Unknown]
  - Agitation [Unknown]
  - Hyponatraemia [Unknown]
  - Drug interaction [Unknown]
  - Dehydration [Unknown]
  - Nausea [Unknown]
  - Cardioactive drug level increased [Unknown]
  - Drug prescribing error [Recovered/Resolved]
  - Poisoning [Recovering/Resolving]
  - Acute kidney injury [Recovering/Resolving]
  - Eating disorder [Unknown]
  - Memory impairment [Unknown]
  - Asthenia [Unknown]
  - Visual impairment [Unknown]
  - Bradycardia [Unknown]
  - General physical health deterioration [Unknown]
  - Confusional state [Not Recovered/Not Resolved]
  - Pyrexia [Unknown]

NARRATIVE: CASE EVENT DATE: 201410
